FAERS Safety Report 23794096 (Version 2)
Quarter: 2024Q2

REPORT INFORMATION
  Report Type: Spontaneous
  Country: FR (occurrence: FR)
  Receive Date: 20240429
  Receipt Date: 20240603
  Transmission Date: 20240716
  Serious: Yes (Death, Other)
  Sender: FDA-Public Use
  Company Number: FR-PFIZER INC-PV202400054523

PATIENT
  Age: 74 Year
  Sex: Female
  Weight: 52 kg

DRUGS (1)
  1. XALKORI [Suspect]
     Active Substance: CRIZOTINIB
     Dosage: 250 MG, 2X/DAY
     Route: 048
     Dates: start: 20221224, end: 20230203

REACTIONS (5)
  - Neoplasm progression [Fatal]
  - Fall [Unknown]
  - Craniocerebral injury [Unknown]
  - Lacunar infarction [Unknown]
  - Chest pain [Unknown]

NARRATIVE: CASE EVENT DATE: 20230113
